FAERS Safety Report 8325311-9 (Version None)
Quarter: 2012Q2

REPORT INFORMATION
  Report Type: 
  Country: None (occurrence: None)
  Receive Date: 20120427
  Receipt Date: 20120423
  Transmission Date: 20120825
  Serious: Yes (Hospitalization)
  Sender: FDA-Public Use
  Company Number: 2012SP000175

PATIENT
  Age: 40 Year
  Sex: Female
  Weight: 131.5 kg

DRUGS (2)
  1. NUVARING [Suspect]
     Indication: CONTRACEPTION
  2. WARFARIN SODIUM [Suspect]
     Indication: ANTICOAGULANT THERAPY

REACTIONS (17)
  - HEPATIC STEATOSIS [None]
  - LUMBAR RADICULOPATHY [None]
  - PULMONARY EMBOLISM [None]
  - BILIARY DILATATION [None]
  - OBESITY [None]
  - FALL [None]
  - DYSLIPIDAEMIA [None]
  - PLEURITIC PAIN [None]
  - CHOLELITHIASIS [None]
  - MIGRAINE [None]
  - BUNDLE BRANCH BLOCK [None]
  - LIGAMENT SPRAIN [None]
  - MUSCLE STRAIN [None]
  - CHOLECYSTITIS [None]
  - HEART RATE IRREGULAR [None]
  - TACHYCARDIA [None]
  - DEEP VEIN THROMBOSIS [None]
